FAERS Safety Report 21333826 (Version 1)
Quarter: 2022Q3

REPORT INFORMATION
  Report Type: Spontaneous
  Country: GB (occurrence: GB)
  Receive Date: 20220914
  Receipt Date: 20220914
  Transmission Date: 20221027
  Serious: Yes (Other)
  Sender: FDA-Public Use
  Company Number: GB-MHRA-MED-202209030710450990-QMFJR

PATIENT
  Sex: Female
  Weight: 80 kg

DRUGS (1)
  1. PROPRANOLOL [Suspect]
     Active Substance: PROPRANOLOL HYDROCHLORIDE
     Indication: Migraine
     Dosage: DOWN TO 10MG A NIGHT
     Route: 065

REACTIONS (1)
  - Weight increased [Not Recovered/Not Resolved]
